FAERS Safety Report 22231980 (Version 1)
Quarter: 2023Q2

REPORT INFORMATION
  Report Type: Spontaneous
  Country: US (occurrence: None)
  Receive Date: 20230420
  Receipt Date: 20230420
  Transmission Date: 20230722
  Serious: No
  Sender: FDA-Public Use
  Company Number: US-ROCHE-3130870

PATIENT
  Sex: Female

DRUGS (1)
  1. ESBRIET [Suspect]
     Active Substance: PIRFENIDONE
     Indication: Idiopathic pulmonary fibrosis
     Dosage: ONGOING: YES
     Route: 048
     Dates: start: 20211207

REACTIONS (6)
  - Weight decreased [Unknown]
  - Oral pain [Unknown]
  - Glossodynia [Unknown]
  - Gingival injury [Unknown]
  - Mouth injury [Unknown]
  - Off label use [Unknown]
